FAERS Safety Report 8243244-3 (Version None)
Quarter: 2012Q1

REPORT INFORMATION
  Report Type: 
  Country: None (occurrence: None)
  Receive Date: 20120329
  Receipt Date: 20120319
  Transmission Date: 20120608
  Serious: No
  Sender: FDA-Public Use
  Company Number: US-B.I. PHARMACEUTICALS,INC./RIDGEFIELD-2012-BP-05214BP

PATIENT
  Sex: Female

DRUGS (1)
  1. ZANTAC [Suspect]

REACTIONS (1)
  - FALSE POSITIVE INVESTIGATION RESULT [None]
